FAERS Safety Report 18489350 (Version 1)
Quarter: 2020Q4

REPORT INFORMATION
  Report Type: Spontaneous
  Country: US (occurrence: US)
  Receive Date: 20201111
  Receipt Date: 20201111
  Transmission Date: 20210114
  Serious: No
  Sender: FDA-Public Use
  Company Number: US-BAYER-2020-231889

PATIENT
  Age: 51 Year
  Sex: Female

DRUGS (7)
  1. HYDROCORTISONE. [Concomitant]
     Active Substance: HYDROCORTISONE
  2. ESTRADIOL. [Suspect]
     Active Substance: ESTRADIOL
     Dosage: 0.05 MG, OW
     Route: 062
  3. NALTREXONE [Concomitant]
     Active Substance: NALTREXONE
  4. NYSTATIN. [Concomitant]
     Active Substance: NYSTATIN
  5. PROGESTERONE. [Concomitant]
     Active Substance: PROGESTERONE
  6. METFORMIN [Concomitant]
     Active Substance: METFORMIN HYDROCHLORIDE
  7. BUPROPION. [Concomitant]
     Active Substance: BUPROPION

REACTIONS (1)
  - Device adhesion issue [None]
